FAERS Safety Report 7299052-3 (Version None)
Quarter: 2011Q1

REPORT INFORMATION
  Report Type: 
  Country: None (occurrence: None)
  Receive Date: 20110217
  Receipt Date: 20110214
  Transmission Date: 20110831
  Serious: Yes (Death)
  Sender: FDA-Public Use
  Company Number: BE-ABBOTT-11P-013-0705115-00

PATIENT
  Age: 62 Year
  Sex: Male

DRUGS (4)
  1. SEROQUEL [Concomitant]
     Indication: DEPRESSION
  2. BEFACT [Concomitant]
     Indication: PRODUCT USED FOR UNKNOWN INDICATION
  3. HUMIRA [Suspect]
     Indication: PSORIASIS
     Dates: start: 20080901
  4. ABILIFY [Concomitant]
     Indication: DEPRESSION

REACTIONS (1)
  - CHOKING [None]
